FAERS Safety Report 8071909-5 (Version None)
Quarter: 2012Q1

REPORT INFORMATION
  Report Type: 
  Country: None (occurrence: None)
  Receive Date: 20120126
  Receipt Date: 20120119
  Transmission Date: 20120608
  Serious: Yes (Hospitalization, Other)
  Sender: FDA-Public Use
  Company Number: US-VERTEX PHARMACEUTICALS INC.-AE-2011-004545

PATIENT
  Sex: Female
  Weight: 76.272 kg

DRUGS (11)
  1. CYCLOSPORINE MODIFIED [Concomitant]
  2. INCIVEK [Suspect]
     Indication: HEPATITIS C
     Route: 048
     Dates: end: 20111205
  3. RIBAVIRIN [Concomitant]
     Indication: HEPATITIS C
     Route: 048
  4. PROMETHAZINE HYDROCHLORIDE [Concomitant]
     Indication: NAUSEA
  5. DOXEPIN [Concomitant]
  6. INTERFERON [Concomitant]
     Indication: HEPATITIS C
     Route: 058
  7. LITHIUM CARBONATE [Concomitant]
     Route: 048
  8. LEVOTHYROXINE SODIUM [Concomitant]
     Route: 048
  9. TRAMADOL HCL [Concomitant]
     Route: 048
  10. LORAZEPAM [Concomitant]
  11. AMBIEN [Concomitant]

REACTIONS (7)
  - ANAEMIA [None]
  - OEDEMA PERIPHERAL [None]
  - VULVOVAGINAL CANDIDIASIS [None]
  - DERMATITIS [None]
  - BACTERAEMIA [None]
  - MYALGIA [None]
  - FATIGUE [None]
